FAERS Safety Report 4738171-X (Version None)
Quarter: 2005Q3

REPORT INFORMATION
  Report Type: 
  Country: None (occurrence: None)
  Receive Date: 20050804
  Receipt Date: 20050721
  Transmission Date: 20060218
  Serious: Yes (Hospitalization)
  Sender: FDA-Public Use
  Company Number: 2005S1006499

PATIENT
  Age: 68 Year
  Sex: Male

DRUGS (3)
  1. EXTENDED PHENYTOIN SODIUM [Suspect]
     Indication: CONVULSION
     Dosage: 300 MG; HS; PO
     Route: 048
     Dates: end: 20050718
  2. SIMVASTATIN [Concomitant]
  3. PHENOXYMETHYLPENICILLIN [Concomitant]

REACTIONS (4)
  - FALL [None]
  - GRAND MAL CONVULSION [None]
  - HYPOAESTHESIA [None]
  - MUSCULOSKELETAL DISORDER [None]
